FAERS Safety Report 12218837 (Version 3)
Quarter: 2016Q2

REPORT INFORMATION
  Report Type: Spontaneous
  Country: US (occurrence: US)
  Receive Date: 20160329
  Receipt Date: 20160407
  Transmission Date: 20160815
  Serious: Yes (Hospitalization)
  Sender: FDA-Public Use
  Company Number: US-UNITED THERAPEUTICS-UNT-2016-004776

PATIENT
  Age: 63 Year
  Sex: Female
  Weight: 61.22 kg

DRUGS (3)
  1. LETAIRIS [Concomitant]
     Active Substance: AMBRISENTAN
     Indication: PRODUCT USED FOR UNKNOWN INDICATION
  2. REMODULIN [Suspect]
     Active Substance: TREPROSTINIL
     Indication: PULMONARY ARTERIAL HYPERTENSION
     Dosage: 0.123 ?G/KG, CONTINUING
     Route: 058
     Dates: start: 20080211
  3. SILDENAFIL. [Concomitant]
     Active Substance: SILDENAFIL
     Indication: PRODUCT USED FOR UNKNOWN INDICATION

REACTIONS (5)
  - Contusion [Unknown]
  - Device dislocation [Unknown]
  - Therapy cessation [Unknown]
  - Poisoning [Unknown]
  - Fall [Unknown]

NARRATIVE: CASE EVENT DATE: 201603
